FAERS Safety Report 17270591 (Version 3)
Quarter: 2021Q4

REPORT INFORMATION
  Report Type: Report from Study
  Country: US (occurrence: US)
  Receive Date: 20200114
  Receipt Date: 20211205
  Transmission Date: 20220303
  Serious: No
  Sender: FDA-Public Use
  Company Number: None

PATIENT
  Sex: Female

DRUGS (5)
  1. COSENTYX [Suspect]
     Active Substance: SECUKINUMAB
     Indication: Product used for unknown indication
     Dosage: 150 MG, QMO
     Route: 065
  2. COSENTYX [Suspect]
     Active Substance: SECUKINUMAB
     Dosage: 300 UNK
     Route: 065
  3. LEVOTHYROXINE [Concomitant]
     Active Substance: LEVOTHYROXINE
     Indication: Product used for unknown indication
     Dosage: UNK
     Route: 065
  4. FETZIMA [Concomitant]
     Active Substance: LEVOMILNACIPRAN HYDROCHLORIDE
     Indication: Product used for unknown indication
     Dosage: UNK
     Route: 065
  5. ZENZEDI [Concomitant]
     Active Substance: DEXTROAMPHETAMINE SULFATE
     Indication: Product used for unknown indication
     Dosage: UNK
     Route: 065

REACTIONS (6)
  - Xerosis [Not Recovered/Not Resolved]
  - Arthralgia [Not Recovered/Not Resolved]
  - Weight decreased [Not Recovered/Not Resolved]
  - Product storage error [Unknown]
  - Product dispensing error [Not Recovered/Not Resolved]
  - Product dose omission issue [Unknown]
